FAERS Safety Report 23837148 (Version 1)
Quarter: 2024Q2

REPORT INFORMATION
  Report Type: Spontaneous
  Country: EU (occurrence: EU)
  Receive Date: 20240509
  Receipt Date: 20240509
  Transmission Date: 20240717
  Serious: Yes (Death)
  Sender: FDA-Public Use
  Company Number: None

PATIENT

DRUGS (5)
  1. BUPRENORPHINE HYDROCHLORIDE [Suspect]
     Active Substance: BUPRENORPHINE HYDROCHLORIDE
     Dates: end: 20240219
  2. BUPRENORPHINE [Suspect]
     Active Substance: BUPRENORPHINE
     Dates: end: 20240219
  3. CANNABIS SATIVA SUBSP. INDICA TOP [Suspect]
     Active Substance: CANNABIS SATIVA SUBSP. INDICA TOP
     Dates: end: 20240219
  4. COCAINE [Suspect]
     Active Substance: COCAINE
     Dates: end: 20240219
  5. OXAZEPAM [Suspect]
     Active Substance: OXAZEPAM
     Dates: end: 20240219

REACTIONS (2)
  - Asphyxia [Fatal]
  - Drug abuse [Fatal]

NARRATIVE: CASE EVENT DATE: 20240219
